FAERS Safety Report 4734326-9 (Version None)
Quarter: 2005Q3

REPORT INFORMATION
  Report Type: 
  Country: None (occurrence: None)
  Receive Date: 20050729
  Receipt Date: 20050712
  Transmission Date: 20060218
  Serious: Yes (Hospitalization)
  Sender: FDA-Public Use
  Company Number: USA050187255

PATIENT
  Sex: Female

DRUGS (7)
  1. CYMBALTA [Suspect]
     Indication: NEUROPATHIC PAIN
     Dosage: 30 MG DAY
     Dates: start: 20041227, end: 20041227
  2. OXYCONTIN [Concomitant]
  3. NORVASC [Concomitant]
  4. TENORMIN [Concomitant]
  5. CELEBREX [Concomitant]
  6. XANAX (ALPRAZOLAM DUM) [Concomitant]
  7. OXYCODONE [Concomitant]

REACTIONS (2)
  - BURNING SENSATION [None]
  - DIARRHOEA [None]
